FAERS Safety Report 6932129-8 (Version None)
Quarter: 2010Q3

REPORT INFORMATION
  Report Type: 
  Country: None (occurrence: None)
  Receive Date: 20100819
  Receipt Date: 20100810
  Transmission Date: 20110219
  Serious: Yes (Death)
  Sender: FDA-Public Use
  Company Number: A0876418A

PATIENT
  Sex: Male

DRUGS (5)
  1. AVODART [Suspect]
     Indication: PRODUCT USED FOR UNKNOWN INDICATION
     Dosage: .5MG UNKNOWN
     Route: 065
  2. LANOXIN [Concomitant]
  3. ALDACTONE [Concomitant]
  4. UNSPECIFIED MEDICATION [Concomitant]
  5. BUTYLHYOSCINE [Concomitant]

REACTIONS (3)
  - DEATH [None]
  - HYPERTENSION [None]
  - TACHYCARDIA [None]
